FAERS Safety Report 25622737 (Version 1)
Quarter: 2025Q3

REPORT INFORMATION
  Report Type: Spontaneous
  Country: US (occurrence: None)
  Receive Date: 20250729
  Receipt Date: 20250729
  Transmission Date: 20251020
  Serious: Yes (Life-Threatening, Disabling)
  Sender: FDA-CTU
  Company Number: None

PATIENT
  Age: 36 Year
  Sex: Male
  Weight: 103.5 kg

DRUGS (1)
  1. QNASL [Suspect]
     Active Substance: BECLOMETHASONE DIPROPIONATE
     Dosage: ?OTHER QUANTITY : 2 SPRAY(S)?FREQUENCY : DAILY?OTHER ROUTE : NASAL SPRAY?
     Route: 050
     Dates: start: 20250717, end: 20250719

REACTIONS (3)
  - Headache [None]
  - Electric shock sensation [None]
  - Brain injury [None]

NARRATIVE: CASE EVENT DATE: 20250719
